FAERS Safety Report 6476708-3 (Version None)
Quarter: 2009Q4

REPORT INFORMATION
  Report Type: 
  Country: None (occurrence: None)
  Receive Date: 20091204
  Receipt Date: 20091204
  Transmission Date: 20100525
  Serious: Yes (Hospitalization)
  Sender: FDA-Public Use
  Company Number: None

PATIENT
  Sex: Male
  Weight: 59.9 kg

DRUGS (7)
  1. CISPLATIN [Suspect]
     Dosage: 170 MG
     Dates: end: 20091104
  2. AMBIEN [Concomitant]
  3. ATIVAN [Concomitant]
  4. FLUCINONIDE [Concomitant]
  5. PERCOCET [Concomitant]
  6. PLAQUENIL [Concomitant]
  7. ZOFRAN [Concomitant]

REACTIONS (7)
  - DEHYDRATION [None]
  - DERMATITIS [None]
  - GENERAL PHYSICAL HEALTH DETERIORATION [None]
  - NEUTROPENIA [None]
  - ORAL CANDIDIASIS [None]
  - PYREXIA [None]
  - RADIATION MUCOSITIS [None]
